FAERS Safety Report 9779803 (Version 2)
Quarter: 2013Q4

REPORT INFORMATION
  Report Type: Other
  Country: US (occurrence: US)
  Receive Date: 20131223
  Receipt Date: 20131223
  Transmission Date: 20140711
  Serious: Yes (Other)
  Sender: FDA-Public Use
  Company Number: US-ACORDA-ACO_38316_2013

PATIENT
  Age: 53 Year
  Sex: Male
  Weight: 79.37 kg

DRUGS (9)
  1. AMPYRA [Suspect]
     Indication: MULTIPLE SCLEROSIS
     Dosage: 10 MG, BID
     Route: 048
     Dates: start: 20130712, end: 20130901
  2. FLOMAX [Concomitant]
     Indication: BLADDER DISORDER
     Dosage: 0.4 MG, QD
     Route: 048
     Dates: start: 20090204
  3. REBIF [Concomitant]
     Indication: MULTIPLE SCLEROSIS
     Dosage: 44 ?G, TIW
     Route: 058
     Dates: start: 20040409
  4. ALEVE [Concomitant]
     Indication: INFLUENZA LIKE ILLNESS
     Dosage: 2 TABS, TIW
     Route: 048
     Dates: start: 2004
  5. TRIAMTERENE AND HYDROCHLOROTHIAZIDE [Concomitant]
     Indication: HYPERTENSION
     Dosage: UNK, QD
     Route: 048
     Dates: start: 20090204
  6. AMLODIPINE BESYLATE [Concomitant]
     Indication: HYPERTENSION
     Dosage: 5 MG, QD
     Route: 048
     Dates: start: 2012
  7. COQ10 [Concomitant]
     Indication: PRODUCT USED FOR UNKNOWN INDICATION
     Dosage: 3 CAPS, QD
     Route: 048
     Dates: start: 20060808
  8. AMANTADINE HCL [Concomitant]
     Indication: FATIGUE
     Dosage: 100 , BID
     Route: 048
     Dates: start: 20121102
  9. VITAMIN D3 [Concomitant]
     Indication: PRODUCT USED FOR UNKNOWN INDICATION
     Dosage: 1000 IU, 2 TABLETS EVERY MORNING
     Route: 048
     Dates: start: 201201

REACTIONS (2)
  - Grand mal convulsion [Recovered/Resolved]
  - Multiple sclerosis relapse [Unknown]
